FAERS Safety Report 7190803-5 (Version None)
Quarter: 2010Q4

REPORT INFORMATION
  Report Type: 
  Country: None (occurrence: None)
  Receive Date: 20101223
  Receipt Date: 20101210
  Transmission Date: 20110411
  Serious: Yes (Other)
  Sender: FDA-Public Use
  Company Number: JP-ROCHE-703058

PATIENT
  Sex: Male

DRUGS (7)
  1. AVASTIN [Suspect]
     Route: 047
     Dates: start: 20080903, end: 20080903
  2. AVASTIN [Suspect]
     Route: 047
     Dates: start: 20081105, end: 20081105
  3. ANTIDIABETIC DRUG NOS [Concomitant]
     Dosage: PERORAL AGENT
     Route: 048
  4. AMARYL [Concomitant]
     Route: 048
     Dates: start: 19980101
  5. ASPIRIN [Concomitant]
     Dosage: DOSE FORM: ENTERIC COATING DRUG
     Route: 048
     Dates: start: 20000101
  6. MARZULENE S [Concomitant]
     Dosage: DOSE FORM: GRANULATED POWDER
     Route: 048
     Dates: start: 19980101
  7. RENIVACE [Concomitant]
     Route: 048
     Dates: start: 20000101

REACTIONS (1)
  - MACULAR ISCHAEMIA [None]
